FAERS Safety Report 7148818-9 (Version None)
Quarter: 2010Q4

REPORT INFORMATION
  Report Type: 
  Country: None (occurrence: None)
  Receive Date: 20101209
  Receipt Date: 20101130
  Transmission Date: 20110411
  Serious: Yes (Hospitalization, Other)
  Sender: FDA-Public Use
  Company Number: PHHY2010RU81837

PATIENT
  Age: 52 Year
  Sex: Male

DRUGS (3)
  1. MYFORTIC [Suspect]
     Dosage: 1440 MG
     Dates: start: 20080101
  2. CYCLOSPORINE [Concomitant]
     Dosage: 150 MG, DAILY
  3. METYPRED [Concomitant]

REACTIONS (4)
  - HYDROCELE [None]
  - ORCHITIS [None]
  - SURGERY [None]
  - TESTICULAR ATROPHY [None]
